FAERS Safety Report 4382077-5 (Version None)
Quarter: 2004Q2

REPORT INFORMATION
  Report Type: 
  Country: None (occurrence: None)
  Receive Date: 20040615
  Receipt Date: 20040602
  Transmission Date: 20050107
  Serious: Yes (Hospitalization)
  Sender: FDA-Public Use
  Company Number: 01P-163-0109907-00

PATIENT
  Age: 48 Year
  Sex: Female
  Weight: 63.5036 kg

DRUGS (4)
  1. BIAXIN [Suspect]
  2. VERAPAMIL [Concomitant]
  3. CLONAZEPAM [Concomitant]
  4. METOPROLOL TARTRATE [Concomitant]

REACTIONS (26)
  - ABDOMINAL DISTENSION [None]
  - ABDOMINAL PAIN LOWER [None]
  - ATRIAL FIBRILLATION [None]
  - BLOOD PRESSURE IMMEASURABLE [None]
  - COMPUTERISED TOMOGRAM ABNORMAL [None]
  - CYANOSIS [None]
  - DEFAECATION URGENCY [None]
  - DEHYDRATION [None]
  - DIARRHOEA [None]
  - DYSPNOEA [None]
  - ELECTROCARDIOGRAM ABNORMAL [None]
  - ELECTROCARDIOGRAM QT PROLONGED [None]
  - ELECTROCARDIOGRAM QT SHORTENED [None]
  - FAECAL OCCULT BLOOD POSITIVE [None]
  - FEMORAL PULSE DECREASED [None]
  - HAEMATEMESIS [None]
  - HEART RATE DECREASED [None]
  - HEART RATE IRREGULAR [None]
  - HEPATIC FAILURE [None]
  - HYPERSENSITIVITY [None]
  - LETHARGY [None]
  - MULTI-ORGAN FAILURE [None]
  - PULSE ABSENT [None]
  - RENAL FAILURE [None]
  - SEPSIS [None]
  - VOMITING [None]
